FAERS Safety Report 24196302 (Version 1)
Quarter: 2024Q3

REPORT INFORMATION
  Report Type: Spontaneous
  Country: US (occurrence: US)
  Receive Date: 20240809
  Receipt Date: 20240809
  Transmission Date: 20241017
  Serious: No
  Sender: MERCK
  Company Number: US-009507513-2407USA011864

PATIENT
  Sex: Female
  Weight: 195 kg

DRUGS (3)
  1. KEYTRUDA [Suspect]
     Active Substance: PEMBROLIZUMAB
     Indication: Renal cancer
  2. LENVATINIB MESYLATE [Suspect]
     Active Substance: LENVATINIB MESYLATE
     Indication: Renal cancer
     Dosage: 14 MILLIGRAM, QD; STRENGTH: 10 MG/ 4MG
     Route: 048
     Dates: start: 20230427
  3. CORTISONE ACETATE [Concomitant]
     Active Substance: CORTISONE ACETATE

REACTIONS (2)
  - Diarrhoea [Not Recovered/Not Resolved]
  - Ill-defined disorder [Not Recovered/Not Resolved]
